FAERS Safety Report 4436189-8 (Version None)
Quarter: 2004Q3

REPORT INFORMATION
  Report Type: 
  Country: None (occurrence: None)
  Receive Date: 20040830
  Receipt Date: 20040511
  Transmission Date: 20050211
  Serious: No
  Sender: FDA-Public Use
  Company Number: US-BRISTOL-MYERS SQUIBB COMPANY-12584058

PATIENT
  Age: 80 Year
  Sex: Female
  Weight: 70 kg

DRUGS (10)
  1. ERBITUX [Suspect]
     Indication: COLON CANCER METASTATIC
     Route: 042
     Dates: start: 20040510, end: 20040510
  2. BENADRYL [Concomitant]
     Indication: PREMEDICATION
     Dates: start: 20040510, end: 20040510
  3. ALPHAGAN [Concomitant]
     Route: 047
  4. COMPAZINE [Concomitant]
  5. COUMADIN [Concomitant]
  6. LISINOPRIL [Concomitant]
  7. LOMOTIL [Concomitant]
  8. LUMIGAN [Concomitant]
     Route: 047
  9. NORVASC [Concomitant]
  10. TIMOPTIC [Concomitant]
     Route: 047

REACTIONS (2)
  - NAUSEA [None]
  - PYREXIA [None]
